FAERS Safety Report 11838675 (Version 1)
Quarter: 2015Q4

REPORT INFORMATION
  Report Type: Spontaneous
  Country: US (occurrence: US)
  Receive Date: 20151215
  Receipt Date: 20151215
  Transmission Date: 20160305
  Serious: Yes (Hospitalization)
  Sender: FDA-Public Use
  Company Number: US-SA-2015SA072780

PATIENT
  Age: 54 Year
  Sex: Male

DRUGS (33)
  1. LIPITOR [Concomitant]
     Active Substance: ATORVASTATIN CALCIUM
     Dates: start: 1997, end: 20150605
  2. OXYCODONE [Concomitant]
     Active Substance: OXYCODONE
     Dosage: 10/325 MG
     Dates: start: 20111202
  3. LEVAQUIN [Concomitant]
     Active Substance: LEVOFLOXACIN
     Route: 048
     Dates: start: 20150506, end: 20150510
  4. NEURONTIN [Concomitant]
     Active Substance: GABAPENTIN
     Dates: start: 20150313
  5. VISINE [Concomitant]
     Active Substance: TETRAHYDROZOLINE HYDROCHLORIDE
     Dates: start: 20141105
  6. DECADRON [Concomitant]
     Active Substance: DEXAMETHASONE
     Route: 048
     Dates: start: 20140223, end: 20150507
  7. DECADRON [Concomitant]
     Active Substance: DEXAMETHASONE
     Route: 042
     Dates: start: 20140224, end: 20150506
  8. BENADRYL [Concomitant]
     Active Substance: DIPHENHYDRAMINE HYDROCHLORIDE
     Dates: start: 20140224, end: 20150506
  9. COREG [Concomitant]
     Active Substance: CARVEDILOL
  10. BEVACIZUMAB [Concomitant]
     Active Substance: BEVACIZUMAB
     Indication: NON-SMALL CELL LUNG CANCER
     Dates: start: 20111026, end: 20120208
  11. ZANTAC [Concomitant]
     Active Substance: RANITIDINE HYDROCHLORIDE
     Dates: start: 20140224, end: 20150506
  12. XANAX [Concomitant]
     Active Substance: ALPRAZOLAM
     Dates: start: 20140529
  13. XANAX [Concomitant]
     Active Substance: ALPRAZOLAM
     Dates: start: 20150218, end: 20150329
  14. CYCLOBENZAPRINE [Concomitant]
     Active Substance: CYCLOBENZAPRINE
     Dates: start: 20141230
  15. PERCOCET [Concomitant]
     Active Substance: ACETAMINOPHEN\OXYCODONE HYDROCHLORIDE
     Dates: start: 20111202
  16. XANAX [Concomitant]
     Active Substance: ALPRAZOLAM
  17. ALOXI [Concomitant]
     Active Substance: PALONOSETRON HYDROCHLORIDE
     Dates: start: 20140224, end: 20150506
  18. METOPROLOL [Concomitant]
     Active Substance: METOPROLOL
  19. BEVACIZUMAB [Concomitant]
     Active Substance: BEVACIZUMAB
     Indication: NON-SMALL CELL LUNG CANCER
     Route: 042
     Dates: start: 20150505
  20. BEVACIZUMAB [Concomitant]
     Active Substance: BEVACIZUMAB
     Indication: NON-SMALL CELL LUNG CANCER
     Dosage: MAINTENANCE DOSE
     Route: 042
     Dates: start: 20120229, end: 20140124
  21. PIROXICAM. [Concomitant]
     Active Substance: PIROXICAM
     Dates: start: 20130405
  22. IBUPROFEN. [Concomitant]
     Active Substance: IBUPROFEN
     Dates: start: 20150220
  23. LEVAQUIN [Concomitant]
     Active Substance: LEVOFLOXACIN
     Route: 048
     Dates: start: 20150202, end: 20150202
  24. ZANTAC [Concomitant]
     Active Substance: RANITIDINE HYDROCHLORIDE
     Dates: start: 20120113
  25. TAXOTERE [Suspect]
     Active Substance: DOCETAXEL
     Indication: NON-SMALL CELL LUNG CANCER
     Route: 042
     Dates: start: 20140224
  26. BEVACIZUMAB [Concomitant]
     Active Substance: BEVACIZUMAB
     Indication: NON-SMALL CELL LUNG CANCER
     Dosage: FORM: INJECTABLE
     Route: 042
     Dates: start: 20140224
  27. COLACE [Concomitant]
     Active Substance: DOCUSATE SODIUM
     Dates: start: 20111111
  28. LEVAQUIN [Concomitant]
     Active Substance: LEVOFLOXACIN
     Route: 048
     Dates: start: 20150204, end: 20150209
  29. ZOMETA [Concomitant]
     Active Substance: ZOLEDRONIC ACID
     Dates: start: 20111006
  30. NEURONTIN [Concomitant]
     Active Substance: GABAPENTIN
     Dates: start: 20150213
  31. PROMETHAZINE [Concomitant]
     Active Substance: PROMETHAZINE\PROMETHAZINE HYDROCHLORIDE
     Dates: start: 20111018
  32. QUINAPRIL [Concomitant]
     Active Substance: QUINAPRIL\QUINAPRIL HYDROCHLORIDE
     Dates: start: 20130213
  33. DECADRON [Concomitant]
     Active Substance: DEXAMETHASONE
     Dates: start: 20141203, end: 20141208

REACTIONS (3)
  - Dehydration [Recovered/Resolved]
  - Vomiting [Recovered/Resolved]
  - Nausea [Recovered/Resolved]

NARRATIVE: CASE EVENT DATE: 20150512
